FAERS Safety Report 19313360 (Version 1)
Quarter: 2021Q2

REPORT INFORMATION
  Report Type: Spontaneous
  Country: US (occurrence: US)
  Receive Date: 20210527
  Receipt Date: 20210527
  Transmission Date: 20210717
  Serious: Yes (Other)
  Sender: FDA-Public Use
  Company Number: None

PATIENT
  Age: 56 Year
  Sex: Male
  Weight: 165.6 kg

DRUGS (1)
  1. DEFINITY [Suspect]
     Active Substance: PERFLUTREN

REACTIONS (3)
  - Chest discomfort [None]
  - Dyspnoea [None]
  - Pain in extremity [None]

NARRATIVE: CASE EVENT DATE: 20210527
